FAERS Safety Report 25992892 (Version 2)
Quarter: 2025Q4

REPORT INFORMATION
  Report Type: Report from Study
  Country: US (occurrence: US)
  Receive Date: 20251103
  Receipt Date: 20251125
  Transmission Date: 20260117
  Serious: No
  Sender: ABBVIE
  Company Number: US-ABBVIE-6523980

PATIENT
  Age: 53 Year
  Sex: Male
  Weight: 107.95 kg

DRUGS (15)
  1. HUMIRA [Suspect]
     Active Substance: ADALIMUMAB
     Indication: Ankylosing spondylitis
     Dosage: UNKNOWN
     Route: 058
     Dates: start: 2015, end: 2015
  2. VITAMIN K [Concomitant]
     Active Substance: PHYTONADIONE
     Indication: Vitamin supplementation
     Dosage: 100 MICROGRAM
     Route: 048
  3. ENBREL [Concomitant]
     Active Substance: ETANERCEPT
     Indication: Product used for unknown indication
  4. MIRAPEX [Concomitant]
     Active Substance: PRAMIPEXOLE DIHYDROCHLORIDE
     Indication: Restless legs syndrome
     Dosage: 1.5 MILLIGRAM
     Route: 048
  5. FEXOFENADINE HYDROCHLORIDE [Concomitant]
     Active Substance: FEXOFENADINE HYDROCHLORIDE
     Indication: Urticaria
     Dosage: 180 MILLIGRAM
     Route: 048
  6. ESOMEPRAZOLE MAGNESIUM [Concomitant]
     Active Substance: ESOMEPRAZOLE MAGNESIUM
     Indication: Gastrooesophageal reflux disease
     Dosage: 20 MILLIGRAM
     Route: 048
  7. MELOXICAM [Concomitant]
     Active Substance: MELOXICAM
     Indication: Inflammation
     Dosage: 7.5 MILLIGRAM
     Route: 048
  8. LISINOPRIL AND HYDROCHLOROTHIAZIDE [Concomitant]
     Active Substance: HYDROCHLOROTHIAZIDE\LISINOPRIL
     Indication: Hypertension
     Dosage: 12.5 MILLIGRAM
     Route: 048
  9. ICOSAPENT ETHYL [Concomitant]
     Active Substance: ICOSAPENT ETHYL
     Indication: Blood triglycerides
     Route: 048
  10. TYLENOL [Concomitant]
     Active Substance: ACETAMINOPHEN
     Indication: Pain
     Dosage: 650 MILLIGRAM
     Route: 048
  11. VITAMIN D3 [Concomitant]
     Active Substance: CHOLECALCIFEROL
     Indication: Vitamin supplementation
     Route: 048
  12. RINVOQ [Concomitant]
     Active Substance: UPADACITINIB
     Indication: Ankylosing spondylitis
     Route: 048
     Dates: start: 202511
  13. FLECAINIDE [Concomitant]
     Active Substance: FLECAINIDE
     Indication: Ventricular extrasystoles
     Dosage: 50 MILLIGRAM
     Route: 048
  14. TADALAFIL [Concomitant]
     Active Substance: TADALAFIL
     Indication: Cardiovascular disorder
     Dosage: 5 MILLIGRAM
     Route: 048
  15. AMLODIPINE [Concomitant]
     Active Substance: AMLODIPINE BESYLATE
     Indication: Hypertension
     Dosage: 2.5 MILLIGRAM
     Route: 048

REACTIONS (3)
  - Drug ineffective [Unknown]
  - Musculoskeletal stiffness [Unknown]
  - Ankylosing spondylitis [Recovered/Resolved]

NARRATIVE: CASE EVENT DATE: 20150101
